FAERS Safety Report 6266331-8 (Version None)
Quarter: 2009Q3

REPORT INFORMATION
  Report Type: 
  Country: None (occurrence: None)
  Receive Date: 20090713
  Receipt Date: 20090708
  Transmission Date: 20100115
  Serious: Yes (Death, Other)
  Sender: FDA-Public Use
  Company Number: PHEH2009US06820

PATIENT
  Sex: Female

DRUGS (2)
  1. EXJADE [Suspect]
     Indication: MYELODYSPLASTIC SYNDROME
     Dosage: 2500 MG, QD
     Route: 048
     Dates: start: 20090113
  2. EXJADE [Suspect]
     Indication: IRON OVERLOAD

REACTIONS (6)
  - ANEURYSM [None]
  - BLOOD PRESSURE DECREASED [None]
  - CORONARY ARTERIAL STENT INSERTION [None]
  - HYPOAESTHESIA [None]
  - MALLORY-WEISS SYNDROME [None]
  - SEPSIS [None]
